FAERS Safety Report 11096988 (Version 2)
Quarter: 2015Q2

REPORT INFORMATION
  Report Type: Spontaneous
  Country: NZ (occurrence: NZ)
  Receive Date: 20150507
  Receipt Date: 20150611
  Transmission Date: 20150821
  Serious: Yes (Hospitalization)
  Sender: FDA-Public Use
  Company Number: NZ-UCBSA-2015013368

PATIENT
  Sex: Male

DRUGS (11)
  1. SINEMET [Suspect]
     Active Substance: CARBIDOPA\LEVODOPA
     Indication: PARKINSON^S DISEASE
     Dosage: 250 / 25 MG, 4X/DAY (QID)
     Route: 048
  2. LAXSOL [Concomitant]
     Indication: CONSTIPATION
     Dosage: UNK
     Route: 048
  3. ENTACAPONE. [Concomitant]
     Active Substance: ENTACAPONE
     Indication: PARKINSON^S DISEASE
     Dosage: 200 MG, 5X/DAY
  4. LEVODOPA/CARBIDOPA [Suspect]
     Active Substance: CARBIDOPA\LEVODOPA
     Indication: PARKINSON^S DISEASE
     Dosage: (100 / 25 IR) UNK, ONCE DAILY (SINEMET)
     Route: 048
  5. CLONAZEPAM. [Concomitant]
     Active Substance: CLONAZEPAM
     Indication: PRODUCT USED FOR UNKNOWN INDICATION
     Dosage: 0.5 MG, NOCTE
  6. GABAPENTIN. [Concomitant]
     Active Substance: GABAPENTIN
     Indication: BACK PAIN
     Dosage: 300 MG, NOCTE
  7. DONEPEZIL [Concomitant]
     Active Substance: DONEPEZIL
     Indication: DEMENTIA
     Dosage: 5MG PER DAY
  8. CODEINE [Suspect]
     Active Substance: CODEINE
     Indication: BACK PAIN
     Dosage: 30 MG, 2X/DAY (BID)
  9. NEUPRO [Suspect]
     Active Substance: ROTIGOTINE
     Dosage: UNK
  10. LEVODOPA/CARBIDOPA [Suspect]
     Active Substance: CARBIDOPA\LEVODOPA
     Indication: PARKINSON^S DISEASE
     Dosage: 250 MG, ONCE DAILY (QD) CONTROLLED RELEASE
     Route: 048
  11. NEUPRO [Suspect]
     Active Substance: ROTIGOTINE
     Indication: PARKINSON^S DISEASE
     Dosage: 8 MG, ONCE DAILY (QD)
     Route: 062

REACTIONS (4)
  - Hospitalisation [Recovered/Resolved]
  - Dementia [Unknown]
  - Confusional state [Recovered/Resolved]
  - Drug dose omission [Unknown]

NARRATIVE: CASE EVENT DATE: 2015
